FAERS Safety Report 8696092 (Version 3)
Quarter: 2012Q4

REPORT INFORMATION
  Report Type: 
  Country: JP (occurrence: JP)
  Receive Date: 20120801
  Receipt Date: 20120906
  Transmission Date: 20130627
  Serious: Yes (Life-Threatening, Hospitalization)
  Sender: FDA-Public Use
  Company Number: JP-GE HEALTHCARE MEDICAL DIAGNOSTICS-OMPQ-NO-1207S-0814

PATIENT
  Age: 27 Year
  Sex: Female

DRUGS (1)
  1. OMNIPAQUE [Suspect]
     Indication: ABDOMINAL PAIN LOWER
     Route: 042
     Dates: start: 20120713, end: 20120713

REACTIONS (8)
  - Anaphylactic shock [Recovered/Resolved]
  - Blood pressure decreased [Recovered/Resolved]
  - Depressed level of consciousness [Recovered/Resolved]
  - Urticaria [Recovered/Resolved]
  - Feeling abnormal [Recovered/Resolved]
  - Unresponsive to stimuli [Recovered/Resolved]
  - Malaise [Recovered/Resolved]
  - Blood pressure immeasurable [Recovered/Resolved]
